FAERS Safety Report 17752151 (Version 3)
Quarter: 2020Q2

REPORT INFORMATION
  Report Type: Report from Study
  Country: None (occurrence: US)
  Receive Date: 20200506
  Receipt Date: 20200612
  Transmission Date: 20200714
  Serious: Yes (Other)
  Sender: FDA-Public Use
  Company Number: US-ABBVIE-20P-163-3388079-00

PATIENT
  Age: 87 Year
  Sex: Female

DRUGS (4)
  1. IMBRUVICA [Suspect]
     Active Substance: IBRUTINIB
     Route: 048
  2. IMBRUVICA [Suspect]
     Active Substance: IBRUTINIB
     Indication: CHRONIC LYMPHOCYTIC LEUKAEMIA
     Route: 048
     Dates: start: 20200419
  3. AMOXICLAV [Concomitant]
     Active Substance: AMOXICILLIN\CLAVULANATE POTASSIUM
     Indication: PRODUCT USED FOR UNKNOWN INDICATION
  4. IMBRUVICA [Suspect]
     Active Substance: IBRUTINIB
     Route: 048
     Dates: start: 20200423

REACTIONS (13)
  - Red blood cell count abnormal [Unknown]
  - Visual impairment [Unknown]
  - Haemoglobin abnormal [Unknown]
  - Transfusion [Unknown]
  - Platelet count abnormal [Unknown]
  - Paranasal sinus hypersecretion [Unknown]
  - White blood cell count decreased [Unknown]
  - Asthenia [Unknown]
  - Lacrimation increased [Unknown]
  - Dysphonia [Unknown]
  - White blood cell count abnormal [Unknown]
  - Ear discomfort [Unknown]
  - Hypersensitivity [Unknown]

NARRATIVE: CASE EVENT DATE: 2020
